FAERS Safety Report 17146668 (Version 2)
Quarter: 2020Q2

REPORT INFORMATION
  Report Type: Report from Study
  Country: BR (occurrence: BR)
  Receive Date: 20191212
  Receipt Date: 20200415
  Transmission Date: 20200713
  Serious: Yes (Hospitalization, Other)
  Sender: FDA-Public Use
  Company Number: NVSC2019BR062099

PATIENT
  Age: 60 Year
  Sex: Male

DRUGS (3)
  1. VOTRIENT [Suspect]
     Active Substance: PAZOPANIB HYDROCHLORIDE
     Indication: RENAL CANCER METASTATIC
     Dosage: 400 MG
     Route: 065
     Dates: start: 201905, end: 201908
  2. VOTRIENT [Suspect]
     Active Substance: PAZOPANIB HYDROCHLORIDE
     Indication: METASTASES TO SPINE
     Dosage: UNK
     Route: 065
     Dates: start: 20191217
  3. XARELTO [Concomitant]
     Active Substance: RIVAROXABAN
     Indication: PRODUCT USED FOR UNKNOWN INDICATION
     Dosage: UNK (STARED ON ENDING OF ON AN UNKNOWN DAY OF FEB 2019)
     Route: 065
     Dates: start: 201902

REACTIONS (7)
  - Chest pain [Unknown]
  - Femur fracture [Unknown]
  - Malignant neoplasm progression [Not Recovered/Not Resolved]
  - Pulmonary embolism [Unknown]
  - Renal pain [Not Recovered/Not Resolved]
  - Metastases to bone [Not Recovered/Not Resolved]
  - Upper limb fracture [Unknown]

NARRATIVE: CASE EVENT DATE: 201908
